FAERS Safety Report 25346433 (Version 7)
Quarter: 2025Q3

REPORT INFORMATION
  Report Type: Report from Study
  Country: US (occurrence: US)
  Receive Date: 20250522
  Receipt Date: 20250829
  Transmission Date: 20251021
  Serious: Yes (Other)
  Sender: SUNOVION
  Company Number: US-SUMITOMO PHARMA SWITZERLAND GMBH-2025SPA005733

PATIENT
  Age: 68 Year
  Sex: Male

DRUGS (20)
  1. ORGOVYX [Suspect]
     Active Substance: RELUGOLIX
     Indication: Prostate cancer
     Dosage: 360 MG, SINGLE
     Route: 048
     Dates: start: 2022, end: 2022
  2. ORGOVYX [Suspect]
     Active Substance: RELUGOLIX
     Route: 048
  3. ORGOVYX [Suspect]
     Active Substance: RELUGOLIX
     Dosage: 360 MG, SINGLE
     Route: 048
     Dates: start: 20250504, end: 20250504
  4. ORGOVYX [Suspect]
     Active Substance: RELUGOLIX
     Dosage: 120 MG, QD; DRUG LOT NUMBER COULD NOT BE CONFIRMED WITH THE PATIENT
     Route: 048
     Dates: start: 20250505
  5. ATORVASTATIN [Concomitant]
     Active Substance: ATORVASTATIN
  6. VITAMIN B COMPLEX [Concomitant]
     Active Substance: CYANOCOBALAMIN\DEXPANTHENOL\NIACINAMIDE\PYRIDOXINE HYDROCHLORIDE\RIBOFLAVIN 5^-PHOSPHATE SODIUM\THIA
  7. FOLIC ACID [Concomitant]
     Active Substance: FOLIC ACID
  8. FERROUS SULFATE [Concomitant]
     Active Substance: FERROUS SULFATE
  9. GABAPENTIN [Concomitant]
     Active Substance: GABAPENTIN
  10. FISH OIL [Concomitant]
     Active Substance: FISH OIL
  11. LYSINE [Concomitant]
     Active Substance: LYSINE
  12. NUBEQA [Concomitant]
     Active Substance: DAROLUTAMIDE
     Indication: Prostate cancer
     Dosage: 600 MG, BID
     Dates: start: 20250504
  13. VITAMINS [Concomitant]
     Active Substance: VITAMINS
  14. TELMISARTAN [Concomitant]
     Active Substance: TELMISARTAN
  15. Ubiquinol-10 [Concomitant]
  16. VALACYCLOVIR [Concomitant]
     Active Substance: VALACYCLOVIR HYDROCHLORIDE
  17. VITAMIN C [Concomitant]
     Active Substance: ASCORBIC ACID
  18. VITAMIN D3 [Concomitant]
     Active Substance: CHOLECALCIFEROL
  19. LORAZEPAM [Concomitant]
     Active Substance: LORAZEPAM
  20. VITAMINS [Concomitant]
     Active Substance: VITAMINS

REACTIONS (12)
  - Oesophageal stenosis [Unknown]
  - Decreased appetite [Unknown]
  - Chills [Recovered/Resolved]
  - Oesophageal polyp [Unknown]
  - Gastrooesophageal reflux disease [Unknown]
  - Red blood cell count abnormal [Unknown]
  - Haemoglobin abnormal [Unknown]
  - Alanine aminotransferase increased [Unknown]
  - Insomnia [Unknown]
  - Hot flush [Unknown]
  - Fatigue [Unknown]
  - Diarrhoea [Unknown]
